FAERS Safety Report 21555406 (Version 1)
Quarter: 2022Q4

REPORT INFORMATION
  Report Type: Report from Study
  Country: DE (occurrence: DE)
  Receive Date: 20221104
  Receipt Date: 20221104
  Transmission Date: 20230113
  Serious: Yes (Death)
  Sender: FDA-Public Use
  Company Number: DE-MYLANLABS-2022M1121161

PATIENT
  Age: 9 Decade
  Sex: Male

DRUGS (3)
  1. TRIAMCINOLONE [Suspect]
     Active Substance: TRIAMCINOLONE
     Indication: Oesophageal stenosis
     Dosage: 60 MILLIGRAM; CRYSTALLOID SUSPENSION
     Route: 065
     Dates: start: 2017
  2. TRIAMCINOLONE [Suspect]
     Active Substance: TRIAMCINOLONE
     Indication: Prophylaxis
     Dosage: UNK; 5 INJECTIONS DURING 14 DILATION SESSIONS
     Route: 065
  3. BUDESONIDE [Suspect]
     Active Substance: BUDESONIDE
     Indication: Prophylaxis
     Dosage: 1 MILLIGRAM; TWO TIMES
     Route: 065
     Dates: start: 2017

REACTIONS (2)
  - Neoplasm recurrence [Fatal]
  - Oesophageal carcinoma [Fatal]

NARRATIVE: CASE EVENT DATE: 20190101
